FAERS Safety Report 4278089-2 (Version None)
Quarter: 2004Q1

REPORT INFORMATION
  Report Type: 
  Country: None (occurrence: None)
  Receive Date: 20040122
  Receipt Date: 20040122
  Transmission Date: 20041129
  Serious: Yes (Hospitalization, Other)
  Sender: FDA-Public Use
  Company Number: None

PATIENT
  Age: 52 Year
  Sex: Female
  Weight: 61.2356 kg

DRUGS (3)
  1. CARBOPLATIN [Suspect]
     Indication: OVARIAN CANCER
     Dosage: IN 21 DAY CYCLES CARBOPLATIN AT AUC 6 IV DAY 1
     Route: 042
     Dates: start: 20031224
  2. PACLITAXEL [Suspect]
     Dosage: PACLITAXEL 175 MG/M2 IV DAY 1
     Route: 042
  3. SODIUM ASCORBATE [Suspect]
     Dosage: SODIUM ASCORBATE 75 GM IV TWICE WEEKY PER CLINICAL STUDY UNDER BB
     Route: 042

REACTIONS (7)
  - BODY TEMPERATURE INCREASED [None]
  - CHILLS [None]
  - COUGH [None]
  - EAR PAIN [None]
  - MUSCULOSKELETAL PAIN [None]
  - MYALGIA [None]
  - PHARYNGOLARYNGEAL PAIN [None]
